FAERS Safety Report 14301662 (Version 1)
Quarter: 2017Q4

REPORT INFORMATION
  Report Type: Spontaneous
  Country: TR (occurrence: TR)
  Receive Date: 20171219
  Receipt Date: 20171219
  Transmission Date: 20180321
  Serious: Yes (Hospitalization, Other)
  Sender: FDA-Public Use
  Company Number: TR-PFIZER INC-2017534633

PATIENT
  Age: 14 Year
  Sex: Female

DRUGS (3)
  1. VINCRISTINE SULFATE. [Suspect]
     Active Substance: VINCRISTINE SULFATE
     Indication: ACUTE LYMPHOCYTIC LEUKAEMIA
     Dosage: UNK, CYCLIC
  2. POSACONAZOLE [Interacting]
     Active Substance: POSACONAZOLE
     Indication: PROPHYLAXIS
  3. POSACONAZOLE [Interacting]
     Active Substance: POSACONAZOLE
     Indication: PNEUMONIA
     Dosage: UNK
     Route: 048

REACTIONS (8)
  - Febrile neutropenia [Recovered/Resolved]
  - Muscular weakness [Recovered/Resolved]
  - Gait disturbance [Recovered/Resolved]
  - Ileus paralytic [Recovered/Resolved]
  - Renal tubular disorder [Recovered/Resolved]
  - Toxicity to various agents [Recovered/Resolved]
  - Neuralgia [Recovered/Resolved]
  - Potentiating drug interaction [Unknown]
